FAERS Safety Report 9518883 (Version 1)
Quarter: 2013Q3

REPORT INFORMATION
  Report Type: Spontaneous
  Country: CH (occurrence: CH)
  Receive Date: 20130912
  Receipt Date: 20130912
  Transmission Date: 20140515
  Serious: Yes (Hospitalization)
  Sender: FDA-Public Use
  Company Number: CH-PFIZER INC-2013261522

PATIENT
  Age: 90 Year
  Sex: Male

DRUGS (13)
  1. CORDARONE [Suspect]
     Indication: ARRHYTHMIA
     Dosage: 200 MG, 1X/DAY
     Route: 048
     Dates: start: 201110, end: 20120327
  2. ASPIRIN [Concomitant]
     Dosage: 100 MG, 1X/DAY
     Dates: start: 201110
  3. ASPIRIN [Concomitant]
     Dosage: 10 MG, 1X/DAY
     Dates: start: 201108
  4. PLAVIX [Concomitant]
     Dosage: 75 MG, 1X/DAY
     Dates: start: 201110
  5. SIMVASTATIN [Concomitant]
     Dosage: 20 MG, 1X/DAY
     Dates: start: 201110
  6. AMLODIPINE [Concomitant]
     Dosage: UNK
     Dates: start: 201108
  7. COSAAR [Concomitant]
     Dosage: 100 MG, 1X/DAY
  8. ARICEPT [Concomitant]
     Dosage: 10 MG, 1X/DAY
     Dates: start: 2007
  9. DEROXAT [Concomitant]
     Dosage: 20 MG, 1X/DAY
  10. CALCIMAGON-D3 [Concomitant]
     Dosage: 1 G, 1X/DAY
  11. LAXOBERON [Concomitant]
     Dosage: 10 DROPS/D
     Dates: start: 2011
  12. DAFALGAN [Concomitant]
     Dosage: 1 G, 3X/DAY
     Dates: start: 20120320
  13. TRAMAL [Concomitant]
     Dosage: 12.5 MG, 3X/DAY
     Dates: start: 20120320

REACTIONS (3)
  - Hypothyroidism [Recovering/Resolving]
  - Fall [Unknown]
  - Flank pain [Unknown]
